FAERS Safety Report 13261358 (Version 1)
Quarter: 2017Q1

REPORT INFORMATION
  Report Type: Spontaneous
  Country: US (occurrence: US)
  Receive Date: 20170222
  Receipt Date: 20170222
  Transmission Date: 20170428
  Serious: No
  Sender: FDA-Public Use
  Company Number: US-PFIZER INC-2017072739

PATIENT
  Age: 20 Year
  Sex: Female

DRUGS (2)
  1. KETAMINE HCL [Suspect]
     Active Substance: KETAMINE HYDROCHLORIDE
     Dosage: UNK
  2. DAPSONE. [Suspect]
     Active Substance: DAPSONE
     Dosage: UNK

REACTIONS (1)
  - Drug hypersensitivity [Unknown]
